FAERS Safety Report 6779352-3 (Version None)
Quarter: 2010Q2

REPORT INFORMATION
  Report Type: 
  Country: None (occurrence: None)
  Receive Date: 20100618
  Receipt Date: 20100611
  Transmission Date: 20101027
  Serious: Yes (Other)
  Sender: FDA-Public Use
  Company Number: US-SANOFI-AVENTIS-2010SA034359

PATIENT
  Age: 50 Year
  Sex: Female

DRUGS (6)
  1. PLAVIX [Suspect]
     Route: 048
     Dates: start: 20090301
  2. PLAVIX [Suspect]
     Indication: STENT PLACEMENT
     Route: 048
     Dates: start: 20090301
  3. ASPIRIN [Concomitant]
  4. LIPITOR [Concomitant]
  5. FENOFIBRATE [Concomitant]
  6. LOPRESSOR [Concomitant]

REACTIONS (2)
  - CONTUSION [None]
  - IN-STENT CORONARY ARTERY RESTENOSIS [None]
